FAERS Safety Report 7406930-0 (Version None)
Quarter: 2011Q2

REPORT INFORMATION
  Report Type: 
  Country: None (occurrence: None)
  Receive Date: 20110411
  Receipt Date: 20110315
  Transmission Date: 20111010
  Serious: No
  Sender: FDA-Public Use
  Company Number: US-BAYER-2011-024569

PATIENT
  Age: 81 Year
  Sex: Female
  Weight: 63 kg

DRUGS (13)
  1. LASIX [Concomitant]
  2. PRAVACHOL [Concomitant]
  3. DIOVAN [Concomitant]
  4. ATIVAN [Concomitant]
  5. HYDRALAZINE [Concomitant]
  6. FISH OIL [Concomitant]
  7. IMDUR [Concomitant]
  8. ALEVE (CAPLET) [Suspect]
     Indication: ANALGESIC THERAPY
     Route: 048
  9. SYNTHROID [Concomitant]
  10. ATENOLOL [Concomitant]
  11. ACTONEL [Concomitant]
  12. MAGNESIUM [Concomitant]
  13. POTASSIUM SODIUM HYDROGEN CITRATE [Concomitant]

REACTIONS (1)
  - DRUG INEFFECTIVE [None]
